FAERS Safety Report 5775177-6 (Version None)
Quarter: 2008Q2

REPORT INFORMATION
  Report Type: 
  Country: None (occurrence: None)
  Receive Date: 20080617
  Receipt Date: 20080612
  Transmission Date: 20081010
  Serious: Yes (Hospitalization)
  Sender: FDA-Public Use
  Company Number: A0703094A

PATIENT
  Age: 46 Year
  Sex: Female

DRUGS (4)
  1. ALLI [Suspect]
     Route: 048
     Dates: end: 20080106
  2. PREMARIN [Concomitant]
  3. PROPRANOLOL [Concomitant]
  4. ZANTAC [Concomitant]

REACTIONS (9)
  - ABDOMINAL PAIN UPPER [None]
  - BILIARY TRACT DISORDER [None]
  - CHOLECYSTITIS ACUTE [None]
  - CHOLECYSTITIS INFECTIVE [None]
  - CHOLELITHIASIS [None]
  - GALLBLADDER DISORDER [None]
  - GALLBLADDER OEDEMA [None]
  - LEUKOCYTOSIS [None]
  - PAIN [None]
